FAERS Safety Report 17671330 (Version 2)
Quarter: 2020Q2

REPORT INFORMATION
  Report Type: Report from Study
  Country: IT (occurrence: IT)
  Receive Date: 20200415
  Receipt Date: 20200417
  Transmission Date: 20200713
  Serious: Yes (Other)
  Sender: FDA-Public Use
  Company Number: IT-MYLANLABS-2020M1037960

PATIENT
  Age: 78 Year
  Sex: Female

DRUGS (7)
  1. LIXIANA [Concomitant]
     Active Substance: EDOXABAN TOSYLATE
     Indication: ATRIAL FIBRILLATION
     Dosage: 30 MILLIGRAM
     Route: 048
  2. FUROSEMIDE. [Interacting]
     Active Substance: FUROSEMIDE
     Indication: HYPERTENSIVE HEART DISEASE
     Dosage: 25 MILLIGRAM, QOD
     Route: 048
     Dates: start: 20200122, end: 20200131
  3. LASITONE [Interacting]
     Active Substance: FUROSEMIDE\SPIRONOLACTONE
     Indication: HYPERTENSIVE HEART DISEASE
     Dosage: 1 DOSAGE FORM, QOD
     Route: 048
     Dates: start: 20200122, end: 20200131
  4. ROSUVASTATIN CALCIUM. [Concomitant]
     Active Substance: ROSUVASTATIN CALCIUM
     Indication: HYPERCHOLESTEROLAEMIA
     Dosage: 10 MILLIGRAM
     Route: 048
  5. PANTOPRAZOLE [Concomitant]
     Active Substance: PANTOPRAZOLE
     Indication: ABDOMINAL PAIN UPPER
     Dosage: 20 MILLIGRAM
     Route: 048
  6. AMIODARONE [Suspect]
     Active Substance: AMIODARONE
     Indication: ATRIAL FIBRILLATION
     Dosage: 200 MILLIGRAM, QD
     Route: 048
     Dates: start: 20200122, end: 20200131
  7. BISOPROLOL HEMIFUMARATE [Concomitant]
     Active Substance: BISOPROLOL FUMARATE
     Indication: HYPERTENSION
     Dosage: 1.25 MILLIGRAM
     Route: 048

REACTIONS (4)
  - Electrocardiogram QT prolonged [Recovering/Resolving]
  - Sinus bradycardia [Recovering/Resolving]
  - Drug interaction [Unknown]
  - Dyspepsia [Recovering/Resolving]

NARRATIVE: CASE EVENT DATE: 20200124
